FAERS Safety Report 15682732 (Version 21)
Quarter: 2023Q2

REPORT INFORMATION
  Report Type: Spontaneous
  Country: CA (occurrence: CA)
  Receive Date: 20181203
  Receipt Date: 20230529
  Transmission Date: 20230722
  Serious: Yes (Death, Life-Threatening, Hospitalization, Disabling, Congenital Anomaly, Other)
  Sender: FDA-Public Use
  Company Number: PHHY2018CA168554

PATIENT
  Age: 43 Year
  Sex: Female
  Weight: 68 kg

DRUGS (616)
  1. COSENTYX [Suspect]
     Active Substance: SECUKINUMAB
     Indication: Psoriatic arthropathy
     Dosage: UNK
     Route: 065
  2. COSENTYX [Suspect]
     Active Substance: SECUKINUMAB
     Indication: Rheumatoid arthritis
     Dosage: UNK
     Route: 065
  3. COSENTYX [Suspect]
     Active Substance: SECUKINUMAB
     Dosage: UNK
     Route: 005
  4. AIMOVIG [Suspect]
     Active Substance: ERENUMAB-AOOE
     Indication: Migraine
     Dosage: UNK
     Route: 065
  5. ERELZI [Suspect]
     Active Substance: ETANERCEPT-SZZS
     Indication: Rheumatoid arthritis
     Dosage: UNK
     Route: 065
  6. ERELZI [Suspect]
     Active Substance: ETANERCEPT-SZZS
     Dosage: UNK
     Route: 058
  7. ERELZI [Suspect]
     Active Substance: ETANERCEPT-SZZS
     Dosage: 5 MG, QW (1 EVERY 1 WEEK)
     Route: 065
  8. DICLOFENAC DIETHYLAMINE [Suspect]
     Active Substance: DICLOFENAC DIETHYLAMINE
     Indication: Product used for unknown indication
     Dosage: UNK
     Route: 065
  9. LEFLUNOMIDE [Suspect]
     Active Substance: LEFLUNOMIDE
     Indication: Rheumatoid arthritis
     Dosage: UNK
     Route: 048
  10. LEFLUNOMIDE [Suspect]
     Active Substance: LEFLUNOMIDE
     Dosage: UNK
     Route: 048
  11. LEFLUNOMIDE [Suspect]
     Active Substance: LEFLUNOMIDE
     Dosage: UNK
     Route: 065
  12. LEFLUNOMIDE [Suspect]
     Active Substance: LEFLUNOMIDE
     Dosage: 20 MG
     Route: 065
  13. LEFLUNOMIDE [Suspect]
     Active Substance: LEFLUNOMIDE
     Dosage: 10 MG, QD
     Route: 065
  14. LEFLUNOMIDE [Suspect]
     Active Substance: LEFLUNOMIDE
     Dosage: 20 MG, QD
     Route: 065
  15. LEFLUNOMIDE [Suspect]
     Active Substance: LEFLUNOMIDE
     Dosage: 20 MG
     Route: 048
  16. CANDESARTAN [Suspect]
     Active Substance: CANDESARTAN
     Indication: Migraine
     Dosage: UNK
     Route: 048
  17. FOLIC ACID [Suspect]
     Active Substance: FOLIC ACID
     Indication: Rheumatoid arthritis
     Dosage: 5 MG
     Route: 048
  18. FOLIC ACID [Suspect]
     Active Substance: FOLIC ACID
     Dosage: 5 MG
     Route: 048
  19. FOLIC ACID [Suspect]
     Active Substance: FOLIC ACID
     Dosage: 1 MG
     Route: 065
  20. FOLIC ACID [Suspect]
     Active Substance: FOLIC ACID
     Dosage: 1 MG
     Route: 058
  21. FOLIC ACID [Suspect]
     Active Substance: FOLIC ACID
     Dosage: 15 MG
     Route: 065
  22. FOLIC ACID [Suspect]
     Active Substance: FOLIC ACID
     Dosage: 500 MG
     Route: 048
  23. FOLIC ACID [Suspect]
     Active Substance: FOLIC ACID
     Dosage: 25 MG
     Route: 048
  24. FOLIC ACID [Suspect]
     Active Substance: FOLIC ACID
     Dosage: 0.5 MG
     Route: 048
  25. FOLIC ACID [Suspect]
     Active Substance: FOLIC ACID
     Dosage: UNK
     Route: 065
  26. FOLIC ACID [Suspect]
     Active Substance: FOLIC ACID
     Dosage: 500 MG
     Route: 065
  27. FOLIC ACID [Suspect]
     Active Substance: FOLIC ACID
     Dosage: 0.5 MG
     Route: 065
  28. FOLIC ACID [Suspect]
     Active Substance: FOLIC ACID
     Dosage: 15 MG
     Route: 048
  29. FOLIC ACID [Suspect]
     Active Substance: FOLIC ACID
     Dosage: 1 MG
     Route: 065
  30. FOLIC ACID [Suspect]
     Active Substance: FOLIC ACID
     Dosage: 50 MG
     Route: 065
  31. FOLIC ACID [Suspect]
     Active Substance: FOLIC ACID
     Dosage: 1 G
     Route: 048
  32. FOLIC ACID [Suspect]
     Active Substance: FOLIC ACID
     Dosage: 5 MG, Q24H ((1 EVERY 24 HOURS)
     Route: 065
  33. FOLIC ACID [Suspect]
     Active Substance: FOLIC ACID
     Dosage: 3 MG
     Route: 065
  34. FOLIC ACID [Suspect]
     Active Substance: FOLIC ACID
     Dosage: UNK
     Route: 065
  35. FOLIC ACID [Suspect]
     Active Substance: FOLIC ACID
     Dosage: 5 MG
     Route: 065
  36. FOLIC ACID [Suspect]
     Active Substance: FOLIC ACID
     Dosage: 5 MG
     Route: 065
  37. FOLIC ACID [Suspect]
     Active Substance: FOLIC ACID
     Dosage: 1 MG
     Route: 048
  38. FOLIC ACID [Suspect]
     Active Substance: FOLIC ACID
     Dosage: 1 G
     Route: 065
  39. FOLIC ACID [Suspect]
     Active Substance: FOLIC ACID
     Dosage: 25 MG
     Route: 065
  40. DICLOFENAC SODIUM [Suspect]
     Active Substance: DICLOFENAC SODIUM
     Indication: Product used for unknown indication
     Dosage: UNK
     Route: 065
  41. DICLOFENAC SODIUM [Suspect]
     Active Substance: DICLOFENAC SODIUM
     Dosage: 50 MG
     Route: 065
  42. DICLOFENAC SODIUM [Suspect]
     Active Substance: DICLOFENAC SODIUM
     Dosage: UNK
     Route: 047
  43. DICLOFENAC SODIUM [Suspect]
     Active Substance: DICLOFENAC SODIUM
     Dosage: UNK
     Route: 058
  44. MYCOPHENOLATE MOFETIL [Suspect]
     Active Substance: MYCOPHENOLATE MOFETIL
     Indication: Product used for unknown indication
     Dosage: UNK
     Route: 065
  45. GOLD SODIUM THIOMALATE [Suspect]
     Active Substance: GOLD SODIUM THIOMALATE
     Indication: Product used for unknown indication
     Dosage: UNK
     Route: 065
  46. QUETIAPINE FUMARATE [Suspect]
     Active Substance: QUETIAPINE FUMARATE
     Indication: Product used for unknown indication
     Dosage: UNK
     Route: 065
  47. QUETIAPINE FUMARATE [Suspect]
     Active Substance: QUETIAPINE FUMARATE
     Dosage: UNK
     Route: 048
  48. OXYCODONE HYDROCHLORIDE [Suspect]
     Active Substance: OXYCODONE HYDROCHLORIDE
     Indication: Product used for unknown indication
     Dosage: UNK
     Route: 065
  49. OXYCODONE HYDROCHLORIDE [Suspect]
     Active Substance: OXYCODONE HYDROCHLORIDE
     Dosage: UNK
     Route: 065
  50. PANTOPRAZOLE [Suspect]
     Active Substance: PANTOPRAZOLE
     Indication: Dyspepsia
     Dosage: UNK
     Route: 065
  51. PANTOPRAZOLE [Suspect]
     Active Substance: PANTOPRAZOLE
     Dosage: UNK
     Route: 005
  52. HYDROCORTISONE [Suspect]
     Active Substance: HYDROCORTISONE
     Indication: Rheumatoid arthritis
     Dosage: 25 MG
     Route: 065
  53. METHOTREXATE [Suspect]
     Active Substance: METHOTREXATE
     Indication: Rheumatoid arthritis
     Dosage: UNK
     Route: 065
  54. METHOTREXATE [Suspect]
     Active Substance: METHOTREXATE
     Indication: Psoriatic arthropathy
     Dosage: UNK
     Route: 051
  55. METHOTREXATE [Suspect]
     Active Substance: METHOTREXATE
     Dosage: 25 MG, QW
     Route: 058
  56. METHOTREXATE [Suspect]
     Active Substance: METHOTREXATE
     Dosage: 25 MG
     Route: 048
  57. METHOTREXATE [Suspect]
     Active Substance: METHOTREXATE
     Dosage: 25 MG, QW
     Route: 013
  58. METHOTREXATE [Suspect]
     Active Substance: METHOTREXATE
     Dosage: UNK, QD
     Route: 048
  59. METHOTREXATE [Suspect]
     Active Substance: METHOTREXATE
     Dosage: UNK
     Route: 065
  60. METHOTREXATE [Suspect]
     Active Substance: METHOTREXATE
     Dosage: 25 MG, QD
     Route: 042
  61. METHOTREXATE [Suspect]
     Active Substance: METHOTREXATE
     Dosage: 20 MG, QW
     Route: 065
  62. METHOTREXATE [Suspect]
     Active Substance: METHOTREXATE
     Dosage: 20 MG, QD
     Route: 065
  63. METHOTREXATE [Suspect]
     Active Substance: METHOTREXATE
     Dosage: 1 DOSAGE FORM, QD
     Route: 048
  64. METHOTREXATE [Suspect]
     Active Substance: METHOTREXATE
     Dosage: 15 MG, QW
     Route: 048
  65. METHOTREXATE [Suspect]
     Active Substance: METHOTREXATE
     Dosage: 1 G, Q12H
     Route: 048
  66. METHOTREXATE [Suspect]
     Active Substance: METHOTREXATE
     Dosage: 1 DOSAGE FORM, Q24H
     Route: 048
  67. METHOTREXATE [Suspect]
     Active Substance: METHOTREXATE
     Dosage: 200 MG
     Route: 048
  68. METHOTREXATE [Suspect]
     Active Substance: METHOTREXATE
     Dosage: 2 DOSAGE FORM, Q24H
     Route: 065
  69. METHOTREXATE [Suspect]
     Active Substance: METHOTREXATE
     Dosage: 20 MG, QW
     Route: 013
  70. METHOTREXATE [Suspect]
     Active Substance: METHOTREXATE
     Dosage: 25 MG
     Route: 014
  71. METHOTREXATE [Suspect]
     Active Substance: METHOTREXATE
     Dosage: 20 MG, Q24H
     Route: 048
  72. METHOTREXATE [Suspect]
     Active Substance: METHOTREXATE
     Dosage: 25 MG, Q24H
     Route: 013
  73. METHOTREXATE [Suspect]
     Active Substance: METHOTREXATE
     Dosage: 25 MG, Q24H
     Route: 048
  74. METHOTREXATE [Suspect]
     Active Substance: METHOTREXATE
     Dosage: UNK
     Route: 058
  75. METHOTREXATE [Suspect]
     Active Substance: METHOTREXATE
     Dosage: 25 MG, QW
     Route: 013
  76. METHOTREXATE [Suspect]
     Active Substance: METHOTREXATE
     Dosage: 1 G, Q24H
     Route: 048
  77. METHOTREXATE [Suspect]
     Active Substance: METHOTREXATE
     Dosage: 25 MG
     Route: 065
  78. METHOTREXATE [Suspect]
     Active Substance: METHOTREXATE
     Dosage: 25 MG
     Route: 058
  79. METHOTREXATE [Suspect]
     Active Substance: METHOTREXATE
     Dosage: 20 MG
     Route: 048
  80. METHOTREXATE [Suspect]
     Active Substance: METHOTREXATE
     Dosage: 25 MG, QW
     Route: 048
  81. METHOTREXATE [Suspect]
     Active Substance: METHOTREXATE
     Dosage: 15 MG, Q24H
     Route: 048
  82. METHOTREXATE [Suspect]
     Active Substance: METHOTREXATE
     Dosage: 20 MG, QW
     Route: 048
  83. METHOTREXATE [Suspect]
     Active Substance: METHOTREXATE
     Dosage: UNK
     Route: 065
  84. METHOTREXATE [Suspect]
     Active Substance: METHOTREXATE
     Dosage: 15 MG, Q24H
     Route: 065
  85. METHOTREXATE [Suspect]
     Active Substance: METHOTREXATE
     Dosage: 20 MG, Q24H
     Route: 065
  86. METHOTREXATE [Suspect]
     Active Substance: METHOTREXATE
     Dosage: 20 MG, Q24H
     Route: 048
  87. METHOTREXATE [Suspect]
     Active Substance: METHOTREXATE
     Indication: Rheumatoid arthritis
     Dosage: 25 MG
     Route: 058
  88. METHOTREXATE [Suspect]
     Active Substance: METHOTREXATE
     Dosage: 25 MG, QW
     Route: 048
  89. METHOTREXATE [Suspect]
     Active Substance: METHOTREXATE
     Dosage: 20 MG, QD
     Route: 048
  90. METHOTREXATE [Suspect]
     Active Substance: METHOTREXATE
     Dosage: 1 G, BID
     Route: 048
  91. METHOTREXATE [Suspect]
     Active Substance: METHOTREXATE
     Dosage: 25 MG, BID
     Route: 048
  92. METHOTREXATE [Suspect]
     Active Substance: METHOTREXATE
     Dosage: 25 MG, QW
     Route: 013
  93. METHOTREXATE [Suspect]
     Active Substance: METHOTREXATE
     Dosage: 25 MG
     Route: 013
  94. METHOTREXATE [Suspect]
     Active Substance: METHOTREXATE
     Dosage: 1 MG
     Route: 048
  95. METHOTREXATE [Suspect]
     Active Substance: METHOTREXATE
     Dosage: 25 MG
     Route: 048
  96. METHOTREXATE [Suspect]
     Active Substance: METHOTREXATE
     Dosage: 25 MG
     Route: 065
  97. METHOTREXATE [Suspect]
     Active Substance: METHOTREXATE
     Dosage: 20 MG, WE
     Route: 048
  98. METHOTREXATE [Suspect]
     Active Substance: METHOTREXATE
     Dosage: UNK
     Route: 016
  99. METHOTREXATE [Suspect]
     Active Substance: METHOTREXATE
     Dosage: 40 MG
     Route: 048
  100. METHOTREXATE [Suspect]
     Active Substance: METHOTREXATE
     Dosage: 225 MG
     Route: 065
  101. METHOTREXATE [Suspect]
     Active Substance: METHOTREXATE
     Dosage: 25 MG, QD
     Route: 048
  102. RITUXIMAB [Suspect]
     Active Substance: RITUXIMAB
     Indication: Rheumatoid arthritis
     Dosage: UNK
     Route: 042
  103. RITUXIMAB [Suspect]
     Active Substance: RITUXIMAB
     Dosage: UNK
     Route: 065
  104. RITUXIMAB [Suspect]
     Active Substance: RITUXIMAB
     Dosage: UNK
     Route: 058
  105. RITUXIMAB [Suspect]
     Active Substance: RITUXIMAB
     Dosage: UNK
     Route: 043
  106. RITUXIMAB [Suspect]
     Active Substance: RITUXIMAB
     Dosage: UNK
     Route: 041
  107. RITUXIMAB [Suspect]
     Active Substance: RITUXIMAB
     Dosage: UNK
     Route: 042
  108. RITUXIMAB [Suspect]
     Active Substance: RITUXIMAB
     Dosage: 365 MG
     Route: 065
  109. RITUXIMAB [Suspect]
     Active Substance: RITUXIMAB
     Dosage: UNK
     Route: 016
  110. RITUXIMAB [Suspect]
     Active Substance: RITUXIMAB
     Dosage: UNK
     Route: 016
  111. RITUXIMAB [Suspect]
     Active Substance: RITUXIMAB
     Dosage: UNK
     Route: 016
  112. DICLOFENAC POTASSIUM [Suspect]
     Active Substance: DICLOFENAC POTASSIUM
     Indication: Product used for unknown indication
     Dosage: UNK
     Route: 065
  113. ADALIMUMAB [Suspect]
     Active Substance: ADALIMUMAB
     Indication: Rheumatoid arthritis
     Dosage: 4 MG( INFUSION)
     Route: 058
  114. ADALIMUMAB [Suspect]
     Active Substance: ADALIMUMAB
     Dosage: 40 MG
     Route: 058
  115. ADALIMUMAB [Suspect]
     Active Substance: ADALIMUMAB
     Dosage: UNK
     Route: 065
  116. ADALIMUMAB [Suspect]
     Active Substance: ADALIMUMAB
     Dosage: UNK
     Route: 058
  117. ADALIMUMAB [Suspect]
     Active Substance: ADALIMUMAB
     Dosage: 40 MG
     Route: 065
  118. ALENDRONATE SODIUM [Suspect]
     Active Substance: ALENDRONATE SODIUM
     Indication: Rheumatoid arthritis
     Dosage: UNK
     Route: 065
  119. ALENDRONATE SODIUM [Suspect]
     Active Substance: ALENDRONATE SODIUM
     Dosage: 5 MG
     Route: 048
  120. ALENDRONATE SODIUM [Suspect]
     Active Substance: ALENDRONATE SODIUM
     Dosage: UNK
     Route: 048
  121. ALENDRONATE SODIUM [Suspect]
     Active Substance: ALENDRONATE SODIUM
     Dosage: UNK
     Route: 016
  122. ALENDRONATE SODIUM [Suspect]
     Active Substance: ALENDRONATE SODIUM
     Dosage: UNK
     Route: 005
  123. ATOMOXETINE [Suspect]
     Active Substance: ATOMOXETINE
     Indication: Migraine
     Dosage: 1 DOSAGE FORM, QOD
     Route: 065
  124. CORTISONE [Suspect]
     Active Substance: CORTISONE
     Indication: Rheumatoid arthritis
     Dosage: UNK
     Route: 048
  125. CORTISONE [Suspect]
     Active Substance: CORTISONE
     Dosage: 25 MG, TABLET
     Route: 048
  126. HYDROXYCHLOROQUINE SULFATE [Suspect]
     Active Substance: HYDROXYCHLOROQUINE SULFATE
     Indication: Rheumatoid arthritis
     Dosage: 400 MG, QD
     Route: 048
  127. HYDROXYCHLOROQUINE SULFATE [Suspect]
     Active Substance: HYDROXYCHLOROQUINE SULFATE
     Dosage: UNK
     Route: 048
  128. HYDROXYCHLOROQUINE SULFATE [Suspect]
     Active Substance: HYDROXYCHLOROQUINE SULFATE
     Dosage: UNK, QD
     Route: 058
  129. HYDROXYCHLOROQUINE SULFATE [Suspect]
     Active Substance: HYDROXYCHLOROQUINE SULFATE
     Dosage: 400 MG, QD
     Route: 065
  130. HYDROXYCHLOROQUINE SULFATE [Suspect]
     Active Substance: HYDROXYCHLOROQUINE SULFATE
     Dosage: 400 MG
     Route: 065
  131. HYDROXYCHLOROQUINE SULFATE [Suspect]
     Active Substance: HYDROXYCHLOROQUINE SULFATE
     Dosage: UNK
     Route: 065
  132. HYDROXYCHLOROQUINE SULFATE [Suspect]
     Active Substance: HYDROXYCHLOROQUINE SULFATE
     Dosage: 400 MG
     Route: 058
  133. HYDROXYCHLOROQUINE SULFATE [Suspect]
     Active Substance: HYDROXYCHLOROQUINE SULFATE
     Dosage: 400 MG, Q24H
     Route: 048
  134. HYDROXYCHLOROQUINE SULFATE [Suspect]
     Active Substance: HYDROXYCHLOROQUINE SULFATE
     Dosage: 1 DOSAGE FORM, Q24H
     Route: 048
  135. HYDROXYCHLOROQUINE SULFATE [Suspect]
     Active Substance: HYDROXYCHLOROQUINE SULFATE
     Dosage: 40 MG, Q24H
     Route: 048
  136. HYDROXYCHLOROQUINE SULFATE [Suspect]
     Active Substance: HYDROXYCHLOROQUINE SULFATE
     Dosage: 40 MG, Q24H
     Route: 058
  137. HYDROXYCHLOROQUINE SULFATE [Suspect]
     Active Substance: HYDROXYCHLOROQUINE SULFATE
     Dosage: 40 MG, Q24H
     Route: 065
  138. HYDROXYCHLOROQUINE SULFATE [Suspect]
     Active Substance: HYDROXYCHLOROQUINE SULFATE
     Dosage: 400 MG, Q24H
     Route: 066
  139. HYDROXYCHLOROQUINE SULFATE [Suspect]
     Active Substance: HYDROXYCHLOROQUINE SULFATE
     Dosage: 40 MG, Q24H
     Route: 066
  140. HYDROXYCHLOROQUINE SULFATE [Suspect]
     Active Substance: HYDROXYCHLOROQUINE SULFATE
     Dosage: 40 MG, QD
     Route: 065
  141. HYDROXYCHLOROQUINE SULFATE [Suspect]
     Active Substance: HYDROXYCHLOROQUINE SULFATE
     Dosage: UNK
     Route: 005
  142. HYDROXYCHLOROQUINE SULFATE [Suspect]
     Active Substance: HYDROXYCHLOROQUINE SULFATE
     Dosage: 40 MG
     Route: 065
  143. DICLOFENAC [Suspect]
     Active Substance: DICLOFENAC
     Indication: Product used for unknown indication
     Dosage: UNK
     Route: 047
  144. DICLOFENAC [Suspect]
     Active Substance: DICLOFENAC
     Dosage: 50 MG
     Route: 065
  145. DICLOFENAC [Suspect]
     Active Substance: DICLOFENAC
     Dosage: UNK
     Route: 065
  146. ACTEMRA [Suspect]
     Active Substance: TOCILIZUMAB
     Indication: Rheumatoid arthritis
     Dosage: UNK
     Route: 042
  147. ACTEMRA [Suspect]
     Active Substance: TOCILIZUMAB
     Dosage: DOSAGE FORM: UNSPECIFIED
     Route: 058
  148. ACTEMRA [Suspect]
     Active Substance: TOCILIZUMAB
     Dosage: UNK
     Route: 061
  149. ACTEMRA [Suspect]
     Active Substance: TOCILIZUMAB
     Dosage: UNK
     Route: 042
  150. ACTEMRA [Suspect]
     Active Substance: TOCILIZUMAB
     Dosage: 728 MG
     Route: 042
  151. ACTEMRA [Suspect]
     Active Substance: TOCILIZUMAB
     Dosage: 3011.2 MG
     Route: 042
  152. ACTEMRA [Suspect]
     Active Substance: TOCILIZUMAB
     Dosage: 752.8 MG
     Route: 042
  153. ACTEMRA [Suspect]
     Active Substance: TOCILIZUMAB
     Dosage: 2912 MG
     Route: 042
  154. ACTEMRA [Suspect]
     Active Substance: TOCILIZUMAB
     Dosage: 20 MG
     Route: 042
  155. ACTEMRA [Suspect]
     Active Substance: TOCILIZUMAB
     Dosage: UNK
     Route: 058
  156. ACTEMRA [Suspect]
     Active Substance: TOCILIZUMAB
     Dosage: UNK
     Route: 016
  157. ACTEMRA [Suspect]
     Active Substance: TOCILIZUMAB
     Dosage: 728 MG
     Route: 058
  158. ACTEMRA [Suspect]
     Active Substance: TOCILIZUMAB
     Dosage: 752.8 MG
     Route: 058
  159. ACTEMRA [Suspect]
     Active Substance: TOCILIZUMAB
     Dosage: 2912 MG
     Route: 058
  160. ACTEMRA [Suspect]
     Active Substance: TOCILIZUMAB
     Dosage: 20 MG
     Route: 065
  161. ACTEMRA [Suspect]
     Active Substance: TOCILIZUMAB
     Indication: Rheumatoid arthritis
     Dosage: UNK
     Route: 058
  162. ACTEMRA [Suspect]
     Active Substance: TOCILIZUMAB
     Dosage: UNK
     Route: 065
  163. ACTEMRA [Suspect]
     Active Substance: TOCILIZUMAB
     Dosage: UNK
     Route: 061
  164. ACTEMRA [Suspect]
     Active Substance: TOCILIZUMAB
     Dosage: UNK
     Route: 042
  165. ACTEMRA [Suspect]
     Active Substance: TOCILIZUMAB
     Dosage: UNK
     Route: 048
  166. DICLOFENAC DIETHYLAMINE [Suspect]
     Active Substance: DICLOFENAC DIETHYLAMINE
     Indication: Product used for unknown indication
     Dosage: UNK
     Route: 065
  167. CORTISONE ACETATE [Suspect]
     Active Substance: CORTISONE ACETATE
     Indication: Rheumatoid arthritis
     Dosage: UNK
     Route: 048
  168. CORTISONE ACETATE [Suspect]
     Active Substance: CORTISONE ACETATE
     Dosage: 25 MG
     Route: 065
  169. CORTISONE ACETATE [Suspect]
     Active Substance: CORTISONE ACETATE
     Dosage: 3 MG
     Route: 065
  170. CORTISONE ACETATE [Suspect]
     Active Substance: CORTISONE ACETATE
     Indication: Rheumatoid arthritis
     Dosage: 3 MG
     Route: 065
  171. CORTISONE ACETATE [Suspect]
     Active Substance: CORTISONE ACETATE
     Dosage: 25 MG
     Route: 061
  172. CORTISONE ACETATE [Suspect]
     Active Substance: CORTISONE ACETATE
     Dosage: 20 MG
     Route: 061
  173. CORTISONE ACETATE [Suspect]
     Active Substance: CORTISONE ACETATE
     Dosage: UNK
     Route: 065
  174. CORTISONE ACETATE [Suspect]
     Active Substance: CORTISONE ACETATE
     Dosage: 25 MG
     Route: 065
  175. CORTISONE ACETATE [Suspect]
     Active Substance: CORTISONE ACETATE
     Dosage: 25 MG, Q24H
     Route: 061
  176. CORTISONE ACETATE [Suspect]
     Active Substance: CORTISONE ACETATE
     Dosage: UNK
     Route: 061
  177. CORTISONE ACETATE [Suspect]
     Active Substance: CORTISONE ACETATE
     Dosage: 25 MG
     Route: 048
  178. DICLOFENAC DIETHYLAMINE [Suspect]
     Active Substance: DICLOFENAC DIETHYLAMINE
     Indication: Product used for unknown indication
     Dosage: UNK
     Route: 065
  179. SULFASALAZINE [Suspect]
     Active Substance: SULFASALAZINE
     Indication: Rheumatoid arthritis
     Dosage: 100 MG, BID
     Route: 048
  180. SULFASALAZINE [Suspect]
     Active Substance: SULFASALAZINE
     Dosage: 1000 MG, Q24H
     Route: 048
  181. SULFASALAZINE [Suspect]
     Active Substance: SULFASALAZINE
     Dosage: 500 MG, Q12H
     Route: 065
  182. SULFASALAZINE [Suspect]
     Active Substance: SULFASALAZINE
     Dosage: 1 DOSAGE FORM, Q24H
     Route: 048
  183. SULFASALAZINE [Suspect]
     Active Substance: SULFASALAZINE
     Dosage: 1000 MG, BID
     Route: 048
  184. SULFASALAZINE [Suspect]
     Active Substance: SULFASALAZINE
     Dosage: 1 G, BID
     Route: 048
  185. SULFASALAZINE [Suspect]
     Active Substance: SULFASALAZINE
     Dosage: UNK, BID
     Route: 048
  186. SULFASALAZINE [Suspect]
     Active Substance: SULFASALAZINE
     Dosage: 500 MG
     Route: 058
  187. SULFASALAZINE [Suspect]
     Active Substance: SULFASALAZINE
     Dosage: 2 G, Q24H
     Route: 048
  188. SULFASALAZINE [Suspect]
     Active Substance: SULFASALAZINE
     Dosage: 1 G, Q12H
     Route: 048
  189. SULFASALAZINE [Suspect]
     Active Substance: SULFASALAZINE
     Dosage: 500 MG, Q24H
     Route: 058
  190. SULFASALAZINE [Suspect]
     Active Substance: SULFASALAZINE
     Dosage: 1 G, Q24H
     Route: 048
  191. SULFASALAZINE [Suspect]
     Active Substance: SULFASALAZINE
     Dosage: 1 G, Q24H
     Route: 058
  192. SULFASALAZINE [Suspect]
     Active Substance: SULFASALAZINE
     Dosage: 1 G, BID
     Route: 058
  193. SULFASALAZINE [Suspect]
     Active Substance: SULFASALAZINE
     Dosage: 1 MG, Q24H
     Route: 048
  194. SULFASALAZINE [Suspect]
     Active Substance: SULFASALAZINE
     Dosage: 500 MG
     Route: 058
  195. SULFASALAZINE [Suspect]
     Active Substance: SULFASALAZINE
     Dosage: 500 MG, Q24H
     Route: 048
  196. SULFASALAZINE [Suspect]
     Active Substance: SULFASALAZINE
     Dosage: 1 G, QD
     Route: 058
  197. SULFASALAZINE [Suspect]
     Active Substance: SULFASALAZINE
     Dosage: UNK, QD
     Route: 048
  198. SULFASALAZINE [Suspect]
     Active Substance: SULFASALAZINE
     Dosage: 2 G, QD
     Route: 048
  199. SULFASALAZINE [Suspect]
     Active Substance: SULFASALAZINE
     Dosage: 300 MG, QD
     Route: 065
  200. SULFASALAZINE [Suspect]
     Active Substance: SULFASALAZINE
     Dosage: 1 DOSAGE FORM
     Route: 048
  201. SULFASALAZINE [Suspect]
     Active Substance: SULFASALAZINE
     Dosage: 1 DOSAGE FORM, BID
     Route: 048
  202. SULFASALAZINE [Suspect]
     Active Substance: SULFASALAZINE
     Dosage: 1 G, BID
     Route: 058
  203. SULFASALAZINE [Suspect]
     Active Substance: SULFASALAZINE
     Dosage: 10 MG
     Route: 058
  204. SULFASALAZINE [Suspect]
     Active Substance: SULFASALAZINE
     Dosage: 2 MG, BID
     Route: 058
  205. SULFASALAZINE [Suspect]
     Active Substance: SULFASALAZINE
     Dosage: 1000 MG
     Route: 058
  206. DESOXIMETASONE [Suspect]
     Active Substance: DESOXIMETASONE
     Indication: Rheumatoid arthritis
     Dosage: UNK
     Route: 048
  207. DESOXIMETASONE [Suspect]
     Active Substance: DESOXIMETASONE
     Dosage: UNK
     Route: 058
  208. DESOXIMETASONE [Suspect]
     Active Substance: DESOXIMETASONE
     Dosage: UNK
     Route: 048
  209. DESOXIMETASONE [Suspect]
     Active Substance: DESOXIMETASONE
     Dosage: 25 MG
     Route: 065
  210. DESOXIMETASONE [Suspect]
     Active Substance: DESOXIMETASONE
     Dosage: UNK
     Route: 058
  211. DESOXIMETASONE [Suspect]
     Active Substance: DESOXIMETASONE
     Dosage: UNK (GEL)
     Route: 058
  212. DESOXIMETASONE [Suspect]
     Active Substance: DESOXIMETASONE
     Dosage: 25 MG
     Route: 048
  213. DESOXIMETASONE [Suspect]
     Active Substance: DESOXIMETASONE
     Dosage: UNK
     Route: 065
  214. DESOXIMETASONE [Suspect]
     Active Substance: DESOXIMETASONE
     Dosage: UNK
     Route: 048
  215. DESOXIMETASONE [Suspect]
     Active Substance: DESOXIMETASONE
     Dosage: UNK
     Route: 048
  216. DESOXIMETASONE [Suspect]
     Active Substance: DESOXIMETASONE
     Dosage: UNK
     Route: 003
  217. DESOXIMETASONE [Suspect]
     Active Substance: DESOXIMETASONE
     Dosage: 25 MG
     Route: 061
  218. DESOXIMETASONE [Suspect]
     Active Substance: DESOXIMETASONE
     Dosage: 25 MG, QW
     Route: 048
  219. DESOXIMETASONE [Suspect]
     Active Substance: DESOXIMETASONE
     Indication: Rheumatoid arthritis
     Dosage: 25 MG
     Route: 065
  220. DESOXIMETASONE [Suspect]
     Active Substance: DESOXIMETASONE
     Dosage: UNK
     Route: 065
  221. DESOXIMETASONE [Suspect]
     Active Substance: DESOXIMETASONE
     Dosage: UNK
     Route: 065
  222. DESOXIMETASONE [Suspect]
     Active Substance: DESOXIMETASONE
     Dosage: UNK
     Route: 065
  223. DESOXIMETASONE [Suspect]
     Active Substance: DESOXIMETASONE
     Dosage: 25 MG
     Route: 048
  224. DESOXIMETASONE [Suspect]
     Active Substance: DESOXIMETASONE
     Indication: Rheumatoid arthritis
     Dosage: 25 MG
     Route: 061
  225. DESOXIMETASONE [Suspect]
     Active Substance: DESOXIMETASONE
     Dosage: UNK
     Route: 065
  226. DESOXIMETASONE [Suspect]
     Active Substance: DESOXIMETASONE
     Dosage: 25 MG
     Route: 065
  227. DESOXIMETASONE [Suspect]
     Active Substance: DESOXIMETASONE
     Dosage: 25 MG, QW
     Route: 048
  228. DESOXIMETASONE [Suspect]
     Active Substance: DESOXIMETASONE
     Dosage: UNK
     Route: 003
  229. DESOXIMETASONE [Suspect]
     Active Substance: DESOXIMETASONE
     Dosage: UNK
     Route: 058
  230. DESOXIMETASONE [Suspect]
     Active Substance: DESOXIMETASONE
     Dosage: UNK
     Route: 065
  231. DESOXIMETASONE [Suspect]
     Active Substance: DESOXIMETASONE
     Indication: Rheumatoid arthritis
     Dosage: UNK
     Route: 048
  232. DESOXIMETASONE [Suspect]
     Active Substance: DESOXIMETASONE
     Dosage: 25 MG
     Route: 048
  233. DESOXIMETASONE [Suspect]
     Active Substance: DESOXIMETASONE
     Dosage: UNK
     Route: 048
  234. GOLD [Suspect]
     Active Substance: GOLD
     Indication: Product used for unknown indication
     Dosage: UNK
     Route: 065
  235. HYDROCORTISONE ACETATE [Suspect]
     Active Substance: HYDROCORTISONE ACETATE
     Indication: Rheumatoid arthritis
     Dosage: UNK
     Route: 058
  236. HYDROCORTISONE ACETATE [Suspect]
     Active Substance: HYDROCORTISONE ACETATE
     Dosage: UNK
     Route: 065
  237. HYDROCORTISONE ACETATE [Suspect]
     Active Substance: HYDROCORTISONE ACETATE
     Dosage: UNK
     Route: 003
  238. HYDROCORTISONE ACETATE [Suspect]
     Active Substance: HYDROCORTISONE ACETATE
     Dosage: UNK
     Route: 003
  239. HYDROCORTISONE ACETATE [Suspect]
     Active Substance: HYDROCORTISONE ACETATE
     Dosage: UNK
     Route: 048
  240. HYDROCORTISONE ACETATE [Suspect]
     Active Substance: HYDROCORTISONE ACETATE
     Dosage: UNK
     Route: 003
  241. HYDROCORTISONE ACETATE [Suspect]
     Active Substance: HYDROCORTISONE ACETATE
     Dosage: UNK
     Route: 058
  242. HYDROCORTISONE ACETATE [Suspect]
     Active Substance: HYDROCORTISONE ACETATE
     Dosage: UNK
     Route: 058
  243. HYDROCORTISONE ACETATE [Suspect]
     Active Substance: HYDROCORTISONE ACETATE
     Indication: Rheumatoid arthritis
     Dosage: UNK
     Route: 048
  244. HYDROCORTISONE ACETATE [Suspect]
     Active Substance: HYDROCORTISONE ACETATE
     Dosage: UNK
     Route: 065
  245. HYDROCORTISONE ACETATE [Suspect]
     Active Substance: HYDROCORTISONE ACETATE
     Dosage: UNK
     Route: 058
  246. PSEUDOEPHEDRINE HYDROCHLORIDE [Suspect]
     Active Substance: PSEUDOEPHEDRINE HYDROCHLORIDE
     Indication: Rheumatoid arthritis
     Dosage: UNK
     Route: 065
  247. PSEUDOEPHEDRINE HYDROCHLORIDE [Suspect]
     Active Substance: PSEUDOEPHEDRINE HYDROCHLORIDE
     Dosage: 10 MG
     Route: 065
  248. PSEUDOEPHEDRINE HYDROCHLORIDE [Suspect]
     Active Substance: PSEUDOEPHEDRINE HYDROCHLORIDE
     Dosage: 1 MG
     Route: 065
  249. PSEUDOEPHEDRINE HYDROCHLORIDE [Suspect]
     Active Substance: PSEUDOEPHEDRINE HYDROCHLORIDE
     Dosage: 25 MG
     Route: 065
  250. PSEUDOEPHEDRINE HYDROCHLORIDE [Suspect]
     Active Substance: PSEUDOEPHEDRINE HYDROCHLORIDE
     Dosage: UNK
     Route: 065
  251. PSEUDOEPHEDRINE HYDROCHLORIDE [Suspect]
     Active Substance: PSEUDOEPHEDRINE HYDROCHLORIDE
     Dosage: 10 MG, Q24H
     Route: 048
  252. CETIRIZINE HYDROCHLORIDE [Suspect]
     Active Substance: CETIRIZINE HYDROCHLORIDE
     Indication: Rheumatoid arthritis
     Dosage: 10 MG (FILM COATED)
     Route: 065
  253. CETIRIZINE HYDROCHLORIDE [Suspect]
     Active Substance: CETIRIZINE HYDROCHLORIDE
     Dosage: 25 MG
     Route: 048
  254. CETIRIZINE HYDROCHLORIDE [Suspect]
     Active Substance: CETIRIZINE HYDROCHLORIDE
     Dosage: 10 MG, QD
     Route: 065
  255. CETIRIZINE HYDROCHLORIDE [Suspect]
     Active Substance: CETIRIZINE HYDROCHLORIDE
     Dosage: UNK (HYDROCHLORIDE SUSPECT SOLUTION FOR INJECTION IN PRE-FILLED SYRINGE)
     Route: 065
  256. CETIRIZINE HYDROCHLORIDE [Suspect]
     Active Substance: CETIRIZINE HYDROCHLORIDE
     Dosage: UNK
     Route: 065
  257. CETIRIZINE HYDROCHLORIDE [Suspect]
     Active Substance: CETIRIZINE HYDROCHLORIDE
     Indication: Rheumatoid arthritis
     Dosage: 10 MG, QD
     Route: 048
  258. CETIRIZINE HYDROCHLORIDE [Suspect]
     Active Substance: CETIRIZINE HYDROCHLORIDE
     Dosage: 10 MG
     Route: 048
  259. CETIRIZINE HYDROCHLORIDE [Suspect]
     Active Substance: CETIRIZINE HYDROCHLORIDE
     Dosage: 25 MG
     Route: 048
  260. CETIRIZINE HYDROCHLORIDE [Suspect]
     Active Substance: CETIRIZINE HYDROCHLORIDE
     Dosage: 10 MG
     Route: 065
  261. CETIRIZINE HYDROCHLORIDE [Suspect]
     Active Substance: CETIRIZINE HYDROCHLORIDE
     Dosage: UNK
     Route: 065
  262. CETIRIZINE HYDROCHLORIDE [Suspect]
     Active Substance: CETIRIZINE HYDROCHLORIDE
     Dosage: UNK
     Route: 042
  263. CETIRIZINE HYDROCHLORIDE [Suspect]
     Active Substance: CETIRIZINE HYDROCHLORIDE
     Dosage: 25 MG
     Route: 005
  264. CETIRIZINE HYDROCHLORIDE [Suspect]
     Active Substance: CETIRIZINE HYDROCHLORIDE
     Dosage: 10 MG
     Route: 016
  265. CETIRIZINE HYDROCHLORIDE [Suspect]
     Active Substance: CETIRIZINE HYDROCHLORIDE
     Dosage: 10 MG, Q24H
     Route: 065
  266. CETIRIZINE HYDROCHLORIDE [Suspect]
     Active Substance: CETIRIZINE HYDROCHLORIDE
     Dosage: 10 MG
     Route: 048
  267. CETIRIZINE HYDROCHLORIDE [Suspect]
     Active Substance: CETIRIZINE HYDROCHLORIDE
     Dosage: 25 MG
     Route: 048
  268. CETIRIZINE HYDROCHLORIDE [Suspect]
     Active Substance: CETIRIZINE HYDROCHLORIDE
     Indication: Rheumatoid arthritis
     Dosage: UNK
     Route: 065
  269. CETIRIZINE HYDROCHLORIDE [Suspect]
     Active Substance: CETIRIZINE HYDROCHLORIDE
     Dosage: UNK
     Route: 016
  270. CETIRIZINE HYDROCHLORIDE [Suspect]
     Active Substance: CETIRIZINE HYDROCHLORIDE
     Indication: Rheumatoid arthritis
     Dosage: 10 MG
     Route: 065
  271. CETIRIZINE HYDROCHLORIDE [Suspect]
     Active Substance: CETIRIZINE HYDROCHLORIDE
     Dosage: UNK
     Route: 065
  272. CETIRIZINE HYDROCHLORIDE [Suspect]
     Active Substance: CETIRIZINE HYDROCHLORIDE
     Indication: Rheumatoid arthritis
     Dosage: 10 MG
     Route: 065
  273. CETIRIZINE HYDROCHLORIDE [Suspect]
     Active Substance: CETIRIZINE HYDROCHLORIDE
     Dosage: 25 MG
     Route: 065
  274. SIMPONI [Suspect]
     Active Substance: GOLIMUMAB
     Indication: Rheumatoid arthritis
     Dosage: UNK
     Route: 065
  275. SIMPONI [Suspect]
     Active Substance: GOLIMUMAB
     Indication: Rheumatoid arthritis
     Dosage: UNK
     Route: 065
  276. SIMPONI [Suspect]
     Active Substance: GOLIMUMAB
     Dosage: UNK
     Route: 058
  277. SIMPONI [Suspect]
     Active Substance: GOLIMUMAB
     Dosage: UNK
     Route: 058
  278. SIMPONI [Suspect]
     Active Substance: GOLIMUMAB
     Dosage: UNK
     Route: 042
  279. SIMPONI [Suspect]
     Active Substance: GOLIMUMAB
     Dosage: 50 MG, QMO
     Route: 065
  280. PHTHALYLSULFATHIAZOLE [Suspect]
     Active Substance: PHTHALYLSULFATHIAZOLE
     Indication: Rheumatoid arthritis
     Dosage: UNK
     Route: 058
  281. PHTHALYLSULFATHIAZOLE [Suspect]
     Active Substance: PHTHALYLSULFATHIAZOLE
     Dosage: UNK
     Route: 042
  282. PHTHALYLSULFATHIAZOLE [Suspect]
     Active Substance: PHTHALYLSULFATHIAZOLE
     Dosage: UNK
     Route: 065
  283. PHTHALYLSULFATHIAZOLE [Suspect]
     Active Substance: PHTHALYLSULFATHIAZOLE
     Dosage: 500 MG, QD
     Route: 065
  284. PHTHALYLSULFATHIAZOLE [Suspect]
     Active Substance: PHTHALYLSULFATHIAZOLE
     Dosage: UNK, Q24H
     Route: 048
  285. PHTHALYLSULFATHIAZOLE [Suspect]
     Active Substance: PHTHALYLSULFATHIAZOLE
     Dosage: 500 MG
     Route: 048
  286. PHTHALYLSULFATHIAZOLE [Suspect]
     Active Substance: PHTHALYLSULFATHIAZOLE
     Dosage: 1000 MG
     Route: 048
  287. PHTHALYLSULFATHIAZOLE [Suspect]
     Active Substance: PHTHALYLSULFATHIAZOLE
     Dosage: UNK
     Route: 016
  288. PHTHALYLSULFATHIAZOLE [Suspect]
     Active Substance: PHTHALYLSULFATHIAZOLE
     Dosage: 2000 MG
     Route: 048
  289. PHTHALYLSULFATHIAZOLE [Suspect]
     Active Substance: PHTHALYLSULFATHIAZOLE
     Dosage: 1000 MG, BID
     Route: 048
  290. PHTHALYLSULFATHIAZOLE [Suspect]
     Active Substance: PHTHALYLSULFATHIAZOLE
     Dosage: UNK
     Route: 065
  291. PHTHALYLSULFATHIAZOLE [Suspect]
     Active Substance: PHTHALYLSULFATHIAZOLE
     Dosage: 1000 MG, Q12H
     Route: 048
  292. PHTHALYLSULFATHIAZOLE [Suspect]
     Active Substance: PHTHALYLSULFATHIAZOLE
     Dosage: UNK
     Route: 065
  293. PHTHALYLSULFATHIAZOLE [Suspect]
     Active Substance: PHTHALYLSULFATHIAZOLE
     Dosage: 400 MG
     Route: 065
  294. ARAVA [Suspect]
     Active Substance: LEFLUNOMIDE
     Indication: Rheumatoid arthritis
     Dosage: 20 MG
     Route: 048
  295. ARAVA [Suspect]
     Active Substance: LEFLUNOMIDE
     Dosage: UNK
     Route: 048
  296. ARAVA [Suspect]
     Active Substance: LEFLUNOMIDE
     Dosage: UNK
     Route: 065
  297. ARAVA [Suspect]
     Active Substance: LEFLUNOMIDE
     Dosage: 20 MG, Q24H
     Route: 048
  298. ARAVA [Suspect]
     Active Substance: LEFLUNOMIDE
     Dosage: 20 G
     Route: 065
  299. ARAVA [Suspect]
     Active Substance: LEFLUNOMIDE
     Dosage: UNK
     Route: 048
  300. ARAVA [Suspect]
     Active Substance: LEFLUNOMIDE
     Dosage: UNK
     Route: 005
  301. CIMZIA [Suspect]
     Active Substance: CERTOLIZUMAB PEGOL
     Indication: Rheumatoid arthritis
     Dosage: UNK
     Route: 058
  302. CIMZIA [Suspect]
     Active Substance: CERTOLIZUMAB PEGOL
     Indication: Psoriasis
     Dosage: 400 MG
     Route: 058
  303. CIMZIA [Suspect]
     Active Substance: CERTOLIZUMAB PEGOL
     Dosage: UNK
     Route: 065
  304. CIMZIA [Suspect]
     Active Substance: CERTOLIZUMAB PEGOL
     Dosage: 2.0 DOSAGE FORM
     Route: 058
  305. CIMZIA [Suspect]
     Active Substance: CERTOLIZUMAB PEGOL
     Dosage: 400 MG, QMO
     Route: 058
  306. CIMZIA [Suspect]
     Active Substance: CERTOLIZUMAB PEGOL
     Dosage: 1 DOSAGE FORM, Q24H
     Route: 058
  307. CIMZIA [Suspect]
     Active Substance: CERTOLIZUMAB PEGOL
     Dosage: UNK
     Route: 005
  308. CIMZIA [Suspect]
     Active Substance: CERTOLIZUMAB PEGOL
     Indication: Rheumatoid arthritis
     Dosage: UNK
     Route: 065
  309. CIMZIA [Suspect]
     Active Substance: CERTOLIZUMAB PEGOL
     Indication: Psoriasis
     Dosage: UNK
     Route: 058
  310. CIMZIA [Suspect]
     Active Substance: CERTOLIZUMAB PEGOL
     Dosage: 400 MG
     Route: 058
  311. PLAQUENIL [Suspect]
     Active Substance: HYDROXYCHLOROQUINE SULFATE
     Indication: Rheumatoid arthritis
     Dosage: 400 MG, QD
     Route: 048
     Dates: start: 2006
  312. PLAQUENIL [Suspect]
     Active Substance: HYDROXYCHLOROQUINE SULFATE
     Dosage: UNK UNK, QD
     Route: 048
  313. PLAQUENIL [Suspect]
     Active Substance: HYDROXYCHLOROQUINE SULFATE
     Dosage: UNK
     Route: 005
  314. PLAQUENIL [Suspect]
     Active Substance: HYDROXYCHLOROQUINE SULFATE
     Dosage: UNK
     Route: 016
  315. PLAQUENIL [Suspect]
     Active Substance: HYDROXYCHLOROQUINE SULFATE
     Dosage: UNK
     Route: 048
  316. PLAQUENIL [Suspect]
     Active Substance: HYDROXYCHLOROQUINE SULFATE
     Dosage: UNK
     Route: 065
  317. CETIRIZINE HYDROCHLORIDE\PSEUDOEPHEDRINE HYDROCHLORIDE [Suspect]
     Active Substance: CETIRIZINE HYDROCHLORIDE\PSEUDOEPHEDRINE HYDROCHLORIDE
     Indication: Product used for unknown indication
     Dosage: UNK
     Route: 065
  318. CETIRIZINE HYDROCHLORIDE\PSEUDOEPHEDRINE HYDROCHLORIDE [Suspect]
     Active Substance: CETIRIZINE HYDROCHLORIDE\PSEUDOEPHEDRINE HYDROCHLORIDE
     Dosage: 10 MG
     Route: 065
  319. ENBREL [Suspect]
     Active Substance: ETANERCEPT
     Indication: Rheumatoid arthritis
     Dosage: 50 MG, QW
     Route: 058
  320. ENBREL [Suspect]
     Active Substance: ETANERCEPT
     Indication: Psoriatic arthropathy
     Dosage: UNK
     Route: 058
  321. ENBREL [Suspect]
     Active Substance: ETANERCEPT
     Dosage: 1 DOSAGE FORM, QW
     Route: 058
  322. ENBREL [Suspect]
     Active Substance: ETANERCEPT
     Dosage: 25 MG, QD
     Route: 048
  323. ENBREL [Suspect]
     Active Substance: ETANERCEPT
     Dosage: UNK
     Route: 058
  324. ENBREL [Suspect]
     Active Substance: ETANERCEPT
     Dosage: 50 MG, QW
     Route: 058
  325. ENBREL [Suspect]
     Active Substance: ETANERCEPT
     Dosage: 25 MG, QD
     Route: 065
  326. ENBREL [Suspect]
     Active Substance: ETANERCEPT
     Dosage: 50 MG, QW
     Route: 058
  327. ENBREL [Suspect]
     Active Substance: ETANERCEPT
     Dosage: UNK
     Route: 058
  328. ENBREL [Suspect]
     Active Substance: ETANERCEPT
     Dosage: UNK
     Route: 058
  329. ENBREL [Suspect]
     Active Substance: ETANERCEPT
     Dosage: UNK
     Route: 065
  330. ENBREL [Suspect]
     Active Substance: ETANERCEPT
     Dosage: 50 MG, QD
     Route: 058
  331. ENBREL [Suspect]
     Active Substance: ETANERCEPT
     Dosage: UNK
     Route: 065
  332. ENBREL [Suspect]
     Active Substance: ETANERCEPT
     Dosage: 50 MG, QW
     Route: 058
  333. ENBREL [Suspect]
     Active Substance: ETANERCEPT
     Dosage: 25 MG
     Route: 065
  334. ENBREL [Suspect]
     Active Substance: ETANERCEPT
     Dosage: 50 MG
     Route: 058
  335. ENBREL [Suspect]
     Active Substance: ETANERCEPT
     Dosage: 90 MG
     Route: 058
  336. ENBREL [Suspect]
     Active Substance: ETANERCEPT
     Dosage: 20 MG
     Route: 058
  337. ENBREL [Suspect]
     Active Substance: ETANERCEPT
     Dosage: 40 MG
     Route: 058
  338. ENBREL [Suspect]
     Active Substance: ETANERCEPT
     Dosage: 50 MG, WE
     Route: 058
  339. HYDROXYCHLOROQUINE SULFATE [Suspect]
     Active Substance: HYDROXYCHLOROQUINE SULFATE
     Indication: Rheumatoid arthritis
     Dosage: 400 MG, QD
     Route: 048
  340. HYDROXYCHLOROQUINE SULFATE [Suspect]
     Active Substance: HYDROXYCHLOROQUINE SULFATE
     Dosage: UNK UNK, QD
     Route: 058
  341. REMICADE [Suspect]
     Active Substance: INFLIXIMAB
     Indication: Rheumatoid arthritis
     Dosage: UNK
     Route: 042
  342. REMICADE [Suspect]
     Active Substance: INFLIXIMAB
     Indication: Psoriatic arthropathy
     Dosage: UNK, DOSAGE FORM: LYOPHILIZED POWDER
     Route: 042
  343. REMICADE [Suspect]
     Active Substance: INFLIXIMAB
     Dosage: UNK
     Route: 065
  344. REMICADE [Suspect]
     Active Substance: INFLIXIMAB
     Indication: Rheumatoid arthritis
     Dosage: UNK
     Route: 065
  345. REMICADE [Suspect]
     Active Substance: INFLIXIMAB
     Dosage: 300 MG
     Route: 042
  346. REMICADE [Suspect]
     Active Substance: INFLIXIMAB
     Dosage: UNK
     Route: 042
  347. FOLIC ACID [Suspect]
     Active Substance: FOLIC ACID
     Indication: Product used for unknown indication
     Dosage: 5 MG
     Route: 065
  348. PREDNISONE [Suspect]
     Active Substance: PREDNISONE
     Indication: Rheumatoid arthritis
     Dosage: UNK
     Route: 048
  349. PREDNISONE [Suspect]
     Active Substance: PREDNISONE
     Indication: Condition aggravated
     Dosage: UNK
     Route: 065
  350. PREDNISONE [Suspect]
     Active Substance: PREDNISONE
     Dosage: 1 MG
     Route: 065
  351. PREDNISONE [Suspect]
     Active Substance: PREDNISONE
     Dosage: 5 MG
     Route: 048
  352. PREDNISONE [Suspect]
     Active Substance: PREDNISONE
     Dosage: 40 MG
     Route: 065
  353. PREDNISONE [Suspect]
     Active Substance: PREDNISONE
     Dosage: 1 MG
     Route: 065
  354. PREDNISONE [Suspect]
     Active Substance: PREDNISONE
     Dosage: 5 MG
     Route: 065
  355. PREDNISONE [Suspect]
     Active Substance: PREDNISONE
     Dosage: UNK
     Route: 065
  356. HUMIRA [Suspect]
     Active Substance: ADALIMUMAB
     Indication: Rheumatoid arthritis
     Dosage: 40 MG, 0.8ML
     Route: 058
  357. HUMIRA [Suspect]
     Active Substance: ADALIMUMAB
     Indication: Psoriatic arthropathy
     Dosage: UNK
     Route: 057
  358. HUMIRA [Suspect]
     Active Substance: ADALIMUMAB
     Dosage: UNK
     Route: 058
  359. HUMIRA [Suspect]
     Active Substance: ADALIMUMAB
     Dosage: 40 MG, CYCLIC
     Route: 058
  360. HUMIRA [Suspect]
     Active Substance: ADALIMUMAB
     Dosage: 40 MG
     Route: 058
  361. HUMIRA [Suspect]
     Active Substance: ADALIMUMAB
     Dosage: UNK
     Route: 057
  362. CETIRIZINE [Suspect]
     Active Substance: CETIRIZINE HYDROCHLORIDE
     Indication: Rheumatoid arthritis
     Dosage: 10 MG, Q24H
     Route: 048
  363. CETIRIZINE [Suspect]
     Active Substance: CETIRIZINE HYDROCHLORIDE
     Dosage: 25 MG
     Route: 065
  364. CETIRIZINE [Suspect]
     Active Substance: CETIRIZINE HYDROCHLORIDE
     Dosage: 25 MG
     Route: 048
  365. CETIRIZINE [Suspect]
     Active Substance: CETIRIZINE HYDROCHLORIDE
     Dosage: UNK
     Route: 065
  366. CETIRIZINE [Suspect]
     Active Substance: CETIRIZINE HYDROCHLORIDE
     Dosage: 20 MG
     Route: 065
  367. CETIRIZINE [Suspect]
     Active Substance: CETIRIZINE HYDROCHLORIDE
     Dosage: 10 MG
     Route: 065
  368. CETIRIZINE [Suspect]
     Active Substance: CETIRIZINE HYDROCHLORIDE
     Dosage: 10 MG
     Route: 048
  369. CETIRIZINE [Suspect]
     Active Substance: CETIRIZINE HYDROCHLORIDE
     Dosage: 10 MG, Q24H
     Route: 065
  370. CETIRIZINE [Suspect]
     Active Substance: CETIRIZINE HYDROCHLORIDE
     Dosage: UNK
     Route: 065
  371. CETIRIZINE [Suspect]
     Active Substance: CETIRIZINE HYDROCHLORIDE
     Dosage: 10 MG
     Route: 065
  372. CETIRIZINE [Suspect]
     Active Substance: CETIRIZINE HYDROCHLORIDE
     Dosage: 10 MG
     Route: 065
  373. CETIRIZINE [Suspect]
     Active Substance: CETIRIZINE HYDROCHLORIDE
     Dosage: 10 MG
     Route: 065
  374. CETIRIZINE [Suspect]
     Active Substance: CETIRIZINE HYDROCHLORIDE
     Dosage: 10 MG
     Route: 048
  375. HUMIRA [Suspect]
     Active Substance: ADALIMUMAB
     Indication: Rheumatoid arthritis
     Dosage: 40 MG
     Route: 058
  376. HUMIRA [Suspect]
     Active Substance: ADALIMUMAB
     Dosage: UNK
     Route: 058
  377. HUMIRA [Suspect]
     Active Substance: ADALIMUMAB
     Dosage: 40 MG
     Route: 057
  378. HUMIRA [Suspect]
     Active Substance: ADALIMUMAB
     Dosage: 4 MG
     Route: 058
  379. HUMIRA [Suspect]
     Active Substance: ADALIMUMAB
     Dosage: UNK
     Route: 057
  380. HUMIRA [Suspect]
     Active Substance: ADALIMUMAB
     Dosage: 40 MG, Q24H
     Route: 058
  381. ORENCIA [Suspect]
     Active Substance: ABATACEPT
     Indication: Rheumatoid arthritis
     Dosage: UNK
     Route: 058
     Dates: start: 2010, end: 2011
  382. ORENCIA [Suspect]
     Active Substance: ABATACEPT
     Dosage: UNK
     Route: 042
  383. ORENCIA [Suspect]
     Active Substance: ABATACEPT
     Dosage: UNK
     Route: 065
     Dates: start: 2010, end: 2011
  384. ORENCIA [Suspect]
     Active Substance: ABATACEPT
     Dosage: UNK
     Route: 042
     Dates: start: 2010, end: 2011
  385. ORENCIA [Suspect]
     Active Substance: ABATACEPT
     Dosage: UNK
     Route: 058
  386. ORENCIA [Suspect]
     Active Substance: ABATACEPT
     Dosage: 5 MG, Q24H
     Route: 065
  387. ORENCIA [Suspect]
     Active Substance: ABATACEPT
     Dosage: UNK
     Route: 067
  388. ORENCIA [Suspect]
     Active Substance: ABATACEPT
     Dosage: 25 MG
     Route: 058
  389. ORENCIA [Suspect]
     Active Substance: ABATACEPT
     Dosage: UNK
     Route: 065
  390. ORENCIA [Suspect]
     Active Substance: ABATACEPT
     Indication: Rheumatoid arthritis
     Dosage: UNK
     Route: 042
  391. ORENCIA [Suspect]
     Active Substance: ABATACEPT
     Dosage: UNK
     Route: 058
  392. ORENCIA [Suspect]
     Active Substance: ABATACEPT
     Dosage: UNK
     Route: 065
  393. ORENCIA [Suspect]
     Active Substance: ABATACEPT
     Dosage: UNK
     Route: 065
  394. ORENCIA [Suspect]
     Active Substance: ABATACEPT
     Dosage: UNK
     Route: 058
  395. ORENCIA [Suspect]
     Active Substance: ABATACEPT
     Dosage: UNK
     Route: 058
  396. ORENCIA [Suspect]
     Active Substance: ABATACEPT
     Dosage: UNK
     Route: 065
  397. ORENCIA [Suspect]
     Active Substance: ABATACEPT
     Dosage: UNK
     Route: 042
  398. ORENCIA [Suspect]
     Active Substance: ABATACEPT
     Dosage: 3 MG, Q12H
     Route: 048
  399. ORENCIA [Suspect]
     Active Substance: ABATACEPT
     Indication: Rheumatoid arthritis
     Dosage: UNK
     Route: 042
  400. ORENCIA [Suspect]
     Active Substance: ABATACEPT
     Dosage: 5 MG, Q24H
     Route: 065
  401. ORENCIA [Suspect]
     Active Substance: ABATACEPT
     Dosage: 25 MG
     Route: 058
  402. ORENCIA [Suspect]
     Active Substance: ABATACEPT
     Dosage: UNK
     Route: 017
  403. ORENCIA [Suspect]
     Active Substance: ABATACEPT
     Dosage: UNK
     Route: 058
  404. SULFATHALIDINE [Suspect]
     Active Substance: PHTHALYLSULFATHIAZOLE
     Indication: Rheumatoid arthritis
     Dosage: 1000 MG, BID
     Route: 048
     Dates: start: 2006, end: 2007
  405. SULFATHALIDINE [Suspect]
     Active Substance: PHTHALYLSULFATHIAZOLE
     Dosage: 500 MG
     Route: 048
  406. SULFATHALIDINE [Suspect]
     Active Substance: PHTHALYLSULFATHIAZOLE
     Dosage: UNK
     Route: 065
  407. SULFATHALIDINE [Suspect]
     Active Substance: PHTHALYLSULFATHIAZOLE
     Dosage: UNK
     Route: 042
  408. TOFACITINIB [Suspect]
     Active Substance: TOFACITINIB
     Indication: Product used for unknown indication
     Dosage: 5 MG, BID (TABLET)
     Route: 065
  409. TOFACITINIB [Suspect]
     Active Substance: TOFACITINIB
     Dosage: UNK
     Route: 065
  410. TOFACITINIB [Suspect]
     Active Substance: TOFACITINIB
     Dosage: 5 MG, Q12H
     Route: 065
  411. TOFACITINIB [Suspect]
     Active Substance: TOFACITINIB
     Dosage: 5 MG, QW
     Route: 048
  412. TOFACITINIB [Suspect]
     Active Substance: TOFACITINIB
     Dosage: 5 MG, Q24H
     Route: 048
  413. CETIRIZINE HYDROCHLORIDE [Suspect]
     Active Substance: CETIRIZINE HYDROCHLORIDE
     Indication: Rheumatoid arthritis
     Dosage: 10 MG
     Route: 065
  414. CETIRIZINE HYDROCHLORIDE [Suspect]
     Active Substance: CETIRIZINE HYDROCHLORIDE
     Dosage: UNK
     Route: 042
  415. CETIRIZINE HYDROCHLORIDE [Suspect]
     Active Substance: CETIRIZINE HYDROCHLORIDE
     Dosage: 25 MG (EXTENDED RELEASE)
     Route: 065
  416. STELARA [Suspect]
     Active Substance: USTEKINUMAB
     Indication: Rheumatoid arthritis
     Dosage: UNK
     Route: 058
  417. STELARA [Suspect]
     Active Substance: USTEKINUMAB
     Dosage: 45.0 MG
     Route: 042
  418. STELARA [Suspect]
     Active Substance: USTEKINUMAB
     Dosage: 45.0 MG
     Route: 042
  419. STELARA [Suspect]
     Active Substance: USTEKINUMAB
     Dosage: UNK
     Route: 065
  420. STELARA [Suspect]
     Active Substance: USTEKINUMAB
     Dosage: UNK
     Route: 065
  421. STELARA [Suspect]
     Active Substance: USTEKINUMAB
     Dosage: 40 MG
     Route: 065
  422. DOMPERIDONE MALEATE [Suspect]
     Active Substance: DOMPERIDONE MALEATE
     Indication: Product used for unknown indication
     Dosage: UNK
     Route: 065
  423. SARILUMAB [Suspect]
     Active Substance: SARILUMAB
     Indication: Rheumatoid arthritis
     Dosage: UNK
     Route: 065
  424. CERTOLIZUMAB PEGOL [Suspect]
     Active Substance: CERTOLIZUMAB PEGOL
     Indication: Rheumatoid arthritis
     Dosage: UNK
     Route: 065
  425. CERTOLIZUMAB PEGOL [Suspect]
     Active Substance: CERTOLIZUMAB PEGOL
     Dosage: 2 DOSAGE FORM
     Route: 058
  426. CERTOLIZUMAB PEGOL [Suspect]
     Active Substance: CERTOLIZUMAB PEGOL
     Dosage: UNK
     Route: 058
  427. CERTOLIZUMAB PEGOL [Suspect]
     Active Substance: CERTOLIZUMAB PEGOL
     Dosage: UNK
     Route: 005
  428. GOLIMUMAB [Suspect]
     Active Substance: GOLIMUMAB
     Indication: Rheumatoid arthritis
     Dosage: UNK
     Route: 058
  429. GOLIMUMAB [Suspect]
     Active Substance: GOLIMUMAB
     Indication: Psoriatic arthropathy
     Dosage: UNK
     Route: 065
  430. GOLIMUMAB [Suspect]
     Active Substance: GOLIMUMAB
     Indication: Product used for unknown indication
     Dosage: UNK
     Route: 065
  431. GOLIMUMAB [Suspect]
     Active Substance: GOLIMUMAB
     Dosage: UNK
     Route: 058
  432. TOCILIZUMAB [Suspect]
     Active Substance: TOCILIZUMAB
     Indication: Rheumatoid arthritis
     Dosage: UNK
     Route: 042
  433. TOCILIZUMAB [Suspect]
     Active Substance: TOCILIZUMAB
     Dosage: UNK
     Route: 058
  434. TOCILIZUMAB [Suspect]
     Active Substance: TOCILIZUMAB
     Dosage: UNK
     Route: 016
  435. TOCILIZUMAB [Suspect]
     Active Substance: TOCILIZUMAB
     Dosage: UNK
     Route: 065
  436. INFLIXIMAB [Suspect]
     Active Substance: INFLIXIMAB
     Indication: Rheumatoid arthritis
     Dosage: UNK
     Route: 042
  437. ABATACEPT [Suspect]
     Active Substance: ABATACEPT
     Indication: Rheumatoid arthritis
     Dosage: 365 DOSAGE FORM
     Route: 042
  438. PREDNISONE [Suspect]
     Active Substance: PREDNISONE
     Indication: Rheumatoid arthritis
     Dosage: UNK
     Route: 048
     Dates: start: 2006, end: 2007
  439. PREDNISONE [Suspect]
     Active Substance: PREDNISONE
     Indication: Condition aggravated
     Dosage: 5 MG
     Route: 048
  440. PREDNISONE [Suspect]
     Active Substance: PREDNISONE
     Dosage: 1 MG
     Route: 048
  441. PREDNISONE [Suspect]
     Active Substance: PREDNISONE
     Dosage: 25 MG
     Route: 048
  442. PREDNISONE [Suspect]
     Active Substance: PREDNISONE
     Dosage: 40 MG
     Route: 065
  443. PREDNISONE [Suspect]
     Active Substance: PREDNISONE
     Dosage: 1 MG
     Route: 042
  444. PREDNISONE [Suspect]
     Active Substance: PREDNISONE
     Dosage: 40 MG
     Route: 048
  445. PREDNISONE [Suspect]
     Active Substance: PREDNISONE
     Dosage: UNK
     Route: 042
  446. PREDNISONE [Suspect]
     Active Substance: PREDNISONE
     Dosage: UNK
     Route: 065
  447. FOSAMAX [Suspect]
     Active Substance: ALENDRONATE SODIUM
     Indication: Rheumatoid arthritis
     Dosage: UNK
     Route: 048
  448. FOSAMAX [Suspect]
     Active Substance: ALENDRONATE SODIUM
     Dosage: UNK
     Route: 058
  449. FOSAMAX [Suspect]
     Active Substance: ALENDRONATE SODIUM
     Dosage: UNK
     Route: 065
  450. FOSAMAX [Suspect]
     Active Substance: ALENDRONATE SODIUM
     Dosage: UNK
     Route: 065
  451. FOSAMAX [Suspect]
     Active Substance: ALENDRONATE SODIUM
     Dosage: UNK
     Route: 065
  452. FOSAMAX [Suspect]
     Active Substance: ALENDRONATE SODIUM
     Dosage: UNK
     Route: 065
  453. FOSAMAX [Suspect]
     Active Substance: ALENDRONATE SODIUM
     Dosage: UNK
     Route: 048
  454. FOSAMAX [Suspect]
     Active Substance: ALENDRONATE SODIUM
     Dosage: UNK
     Route: 048
  455. FOSAMAX [Suspect]
     Active Substance: ALENDRONATE SODIUM
     Dosage: UNK
     Route: 065
  456. FOSAMAX [Suspect]
     Active Substance: ALENDRONATE SODIUM
     Dosage: 5 MG
     Route: 048
  457. FOSAMAX [Suspect]
     Active Substance: ALENDRONATE SODIUM
     Dosage: UNK
     Route: 016
  458. FOSAMAX [Suspect]
     Active Substance: ALENDRONATE SODIUM
     Dosage: UNK
     Route: 005
  459. NAPROXEN SODIUM [Suspect]
     Active Substance: NAPROXEN SODIUM
     Indication: Rheumatoid arthritis
     Dosage: 500 MG, BID
     Route: 065
  460. NAPROXEN SODIUM [Suspect]
     Active Substance: NAPROXEN SODIUM
     Indication: Headache
     Dosage: 500 MG
     Route: 065
  461. SALAZOPYRINE [Suspect]
     Active Substance: SULFASALAZINE
     Indication: Product used for unknown indication
     Dosage: UNK
     Route: 065
  462. SALAZOPYRINE [Suspect]
     Active Substance: SULFASALAZINE
     Dosage: UNK
     Route: 065
  463. APREMILAST [Suspect]
     Active Substance: APREMILAST
     Indication: Product used for unknown indication
     Dosage: 3 MG, BID
     Route: 065
  464. APREMILAST [Suspect]
     Active Substance: APREMILAST
     Dosage: 3 MG, Q12H
     Route: 065
  465. VITAMIN C [Suspect]
     Active Substance: ASCORBIC ACID
     Indication: Product used for unknown indication
     Dosage: UNK
     Route: 065
  466. FLUMETHASONE [Suspect]
     Active Substance: FLUMETHASONE
     Indication: Product used for unknown indication
     Dosage: UNK
     Route: 065
  467. CALCIUM CARBONATE [Suspect]
     Active Substance: CALCIUM CARBONATE
     Indication: Product used for unknown indication
     Dosage: UNK
     Route: 065
  468. CETIRIZINE HYDROCHLORIDE [Suspect]
     Active Substance: CETIRIZINE HYDROCHLORIDE
     Indication: Rheumatoid arthritis
     Dosage: 10 MG
     Route: 065
  469. CETIRIZINE HYDROCHLORIDE [Suspect]
     Active Substance: CETIRIZINE HYDROCHLORIDE
     Dosage: 25 MG
     Route: 065
  470. GOLD SODIUM THIOMALATE [Suspect]
     Active Substance: GOLD SODIUM THIOMALATE
     Indication: Product used for unknown indication
     Dosage: UNK
     Route: 065
  471. BERINERT [Suspect]
     Active Substance: HUMAN C1-ESTERASE INHIBITOR
     Indication: Product used for unknown indication
     Dosage: UNK
     Route: 065
  472. FLUMETHASONE PIVALATE [Suspect]
     Active Substance: FLUMETHASONE PIVALATE
     Indication: Rheumatoid arthritis
     Dosage: UNK
     Route: 065
  473. FLUMETHASONE PIVALATE [Suspect]
     Active Substance: FLUMETHASONE PIVALATE
     Dosage: UNK
     Route: 058
  474. CELEBREX [Suspect]
     Active Substance: CELECOXIB
     Indication: Rheumatoid arthritis
     Dosage: 2 DOSAGE FORM, QD
     Route: 048
  475. CELEBREX [Suspect]
     Active Substance: CELECOXIB
     Dosage: 1 DOSAGE FORM, QD
     Route: 065
  476. CELEBREX [Suspect]
     Active Substance: CELECOXIB
     Dosage: 200 MG
     Route: 065
  477. CELEBREX [Suspect]
     Active Substance: CELECOXIB
     Dosage: 2 DOSAGE FORM
     Route: 065
  478. ALENDRONIC ACID [Suspect]
     Active Substance: ALENDRONIC ACID
     Indication: Rheumatoid arthritis
     Dosage: UNK
     Route: 065
  479. ALENDRONIC ACID [Suspect]
     Active Substance: ALENDRONIC ACID
     Dosage: UNK
     Route: 016
  480. ALENDRONIC ACID [Suspect]
     Active Substance: ALENDRONIC ACID
     Dosage: UNK
     Route: 048
  481. ALENDRONIC ACID [Suspect]
     Active Substance: ALENDRONIC ACID
     Dosage: UNK
     Route: 048
  482. CETRAXATE [Suspect]
     Active Substance: CETRAXATE
     Indication: Rheumatoid arthritis
     Dosage: UNK
     Route: 065
  483. CETRAXATE [Suspect]
     Active Substance: CETRAXATE
     Dosage: UNK
     Route: 065
  484. NUCALA [Suspect]
     Active Substance: MEPOLIZUMAB
     Indication: Product used for unknown indication
     Dosage: UNK
     Route: 065
  485. DICLOFENAC SODIUM [Suspect]
     Active Substance: DICLOFENAC SODIUM
     Indication: Product used for unknown indication
     Dosage: UNK
     Route: 065
  486. HYDROXYCHLOROQUINE [Suspect]
     Active Substance: HYDROXYCHLOROQUINE
     Indication: Rheumatoid arthritis
     Dosage: 400 MG, QD (1 DAYS)
     Route: 048
  487. HYDROXYCHLOROQUINE [Suspect]
     Active Substance: HYDROXYCHLOROQUINE
     Indication: Systemic lupus erythematosus
     Dosage: UNK, QD
     Route: 048
  488. HYDROXYCHLOROQUINE [Suspect]
     Active Substance: HYDROXYCHLOROQUINE
     Dosage: 400 MG, QD
     Route: 065
  489. HYDROXYCHLOROQUINE [Suspect]
     Active Substance: HYDROXYCHLOROQUINE
     Dosage: 40 MG, QD
     Route: 048
  490. HYDROXYCHLOROQUINE [Suspect]
     Active Substance: HYDROXYCHLOROQUINE
     Dosage: UNK, QD
     Route: 048
  491. HYDROXYCHLOROQUINE [Suspect]
     Active Substance: HYDROXYCHLOROQUINE
     Dosage: UNK, QD
     Route: 058
  492. HYDROXYCHLOROQUINE [Suspect]
     Active Substance: HYDROXYCHLOROQUINE
     Dosage: 400 MG, BID
     Route: 065
  493. HYDROXYCHLOROQUINE [Suspect]
     Active Substance: HYDROXYCHLOROQUINE
     Dosage: 420 MG, Q24H
     Route: 048
  494. HYDROXYCHLOROQUINE [Suspect]
     Active Substance: HYDROXYCHLOROQUINE
     Dosage: 400 MG
     Route: 048
  495. HYDROXYCHLOROQUINE [Suspect]
     Active Substance: HYDROXYCHLOROQUINE
     Dosage: 1 DOSAGE FORM, Q24H
     Route: 048
  496. HYDROXYCHLOROQUINE [Suspect]
     Active Substance: HYDROXYCHLOROQUINE
     Dosage: 400 MG, Q24H
     Route: 065
  497. HYDROXYCHLOROQUINE [Suspect]
     Active Substance: HYDROXYCHLOROQUINE
     Dosage: 420 MG
     Route: 048
  498. HYDROXYCHLOROQUINE [Suspect]
     Active Substance: HYDROXYCHLOROQUINE
     Dosage: 400 MG, Q24H
     Route: 066
  499. HYDROXYCHLOROQUINE [Suspect]
     Active Substance: HYDROXYCHLOROQUINE
     Dosage: 40 MG, Q24H
     Route: 048
  500. HYDROXYCHLOROQUINE [Suspect]
     Active Substance: HYDROXYCHLOROQUINE
     Dosage: UNK
     Route: 048
  501. HYDROXYCHLOROQUINE [Suspect]
     Active Substance: HYDROXYCHLOROQUINE
     Dosage: 400 MG, Q24H
     Route: 065
  502. HYDROXYCHLOROQUINE [Suspect]
     Active Substance: HYDROXYCHLOROQUINE
     Dosage: 420 MG, Q24H
     Route: 065
  503. HYDROXYCHLOROQUINE [Suspect]
     Active Substance: HYDROXYCHLOROQUINE
     Dosage: 400 MG, Q24H
     Route: 065
  504. HYDROXYCHLOROQUINE [Suspect]
     Active Substance: HYDROXYCHLOROQUINE
     Dosage: 40 MG
     Route: 065
  505. HYDROXYCHLOROQUINE [Suspect]
     Active Substance: HYDROXYCHLOROQUINE
     Dosage: 1 DOSAGE FORM, QD
     Route: 048
  506. HYDROXYCHLOROQUINE [Suspect]
     Active Substance: HYDROXYCHLOROQUINE
     Dosage: 1 DOSAGE FORM, QD
     Route: 058
  507. CETRAXATE [Suspect]
     Active Substance: CETRAXATE
     Indication: Rheumatoid arthritis
     Dosage: 10 MG, QD
     Route: 048
  508. CETRAXATE [Suspect]
     Active Substance: CETRAXATE
     Dosage: 25 MG
     Route: 048
  509. TRIAMCINOLONE ACETONIDE [Suspect]
     Active Substance: TRIAMCINOLONE ACETONIDE
     Indication: Rheumatoid arthritis
     Dosage: UNK
     Route: 014
  510. SULFATHIAZOLE [Suspect]
     Active Substance: SULFATHIAZOLE
     Indication: Product used for unknown indication
     Dosage: UNK
     Route: 065
  511. NAPROXEN [Suspect]
     Active Substance: NAPROXEN
     Indication: Product used for unknown indication
     Dosage: UNK
     Route: 065
  512. FLUMETHASONE PIVALATE [Suspect]
     Active Substance: FLUMETHASONE PIVALATE
     Indication: Product used for unknown indication
     Dosage: UNK
     Route: 003
  513. FLUMETHASONE PIVALATE [Suspect]
     Active Substance: FLUMETHASONE PIVALATE
     Dosage: UNK
     Route: 065
  514. TRAMADOL HYDROCHLORIDE [Suspect]
     Active Substance: TRAMADOL HYDROCHLORIDE
     Indication: Product used for unknown indication
     Dosage: UNK
     Route: 065
  515. VITAMINS [Suspect]
     Active Substance: VITAMINS
     Indication: Product used for unknown indication
     Dosage: 1 DOSAGE FORM
     Route: 065
  516. MEGLUMINE [Suspect]
     Active Substance: MEGLUMINE
     Indication: Product used for unknown indication
     Dosage: UNK
     Route: 042
  517. CALCIUM GLUBIONATE [Suspect]
     Active Substance: CALCIUM GLUBIONATE
     Indication: Product used for unknown indication
     Dosage: UNK
     Route: 065
  518. CALCIUM GLUBIONATE [Suspect]
     Active Substance: CALCIUM GLUBIONATE
     Dosage: UNK
     Route: 016
  519. ACETAMINOPHEN AND CODEINE [Suspect]
     Active Substance: ACETAMINOPHEN\CODEINE PHOSPHATE
     Indication: Product used for unknown indication
     Dosage: UNK
     Route: 065
  520. ACETAMINOPHEN [Suspect]
     Active Substance: ACETAMINOPHEN
     Indication: Rheumatoid arthritis
     Dosage: UNK
     Route: 065
  521. ACETAMINOPHEN [Suspect]
     Active Substance: ACETAMINOPHEN
     Dosage: 20 MG
     Route: 048
  522. OXYCODONE [Suspect]
     Active Substance: OXYCODONE
     Indication: Product used for unknown indication
     Dosage: UNK
     Route: 065
  523. OXYCODONE TEREPHTHALATE [Suspect]
     Active Substance: OXYCODONE TEREPHTHALATE
     Indication: Product used for unknown indication
     Dosage: UNK
     Route: 065
  524. MAGNESIUM CITRATE [Suspect]
     Active Substance: MAGNESIUM CITRATE
     Indication: Product used for unknown indication
     Dosage: UNK
     Route: 065
  525. CHOLECALCIFEROL [Suspect]
     Active Substance: CHOLECALCIFEROL
     Indication: Product used for unknown indication
     Dosage: UNK
     Route: 065
  526. CHOLECALCIFEROL [Suspect]
     Active Substance: CHOLECALCIFEROL
     Dosage: UNK (CAPSULE)
     Route: 016
  527. ALENDRONATE SODIUM [Suspect]
     Active Substance: ALENDRONATE SODIUM
     Indication: Rheumatoid arthritis
     Dosage: UNK
     Route: 016
  528. ALENDRONATE SODIUM [Suspect]
     Active Substance: ALENDRONATE SODIUM
     Dosage: UNK
     Route: 048
  529. ALENDRONATE SODIUM [Suspect]
     Active Substance: ALENDRONATE SODIUM
     Dosage: UNK
     Route: 005
  530. BOTULINUM TOXIN TYPE A [Suspect]
     Active Substance: BOTULINUM TOXIN TYPE A
     Indication: Product used for unknown indication
     Dosage: UNK
     Route: 065
  531. CELECOXIB [Suspect]
     Active Substance: CELECOXIB
     Indication: Rheumatoid arthritis
     Dosage: 200 MG
     Route: 065
  532. CHLORHEXIDINE [Suspect]
     Active Substance: CHLORHEXIDINE
     Indication: Product used for unknown indication
     Dosage: UNK
     Route: 061
  533. CHLORHEXIDINE [Suspect]
     Active Substance: CHLORHEXIDINE
     Dosage: UNK
     Route: 002
  534. CHLORHEXIDINE [Suspect]
     Active Substance: CHLORHEXIDINE
     Dosage: UNK
     Route: 065
  535. CHLORAPREP [Suspect]
     Active Substance: CHLORHEXIDINE GLUCONATE\ISOPROPYL ALCOHOL
     Indication: Rheumatoid arthritis
     Dosage: UNK
     Route: 061
  536. DOXYCYCLINE HYCLATE [Suspect]
     Active Substance: DOXYCYCLINE HYCLATE
     Indication: Product used for unknown indication
     Dosage: 40 MG
     Route: 065
  537. OTEZLA [Suspect]
     Active Substance: APREMILAST
     Indication: Product used for unknown indication
     Dosage: 3 MG, BID
     Route: 048
  538. OTEZLA [Suspect]
     Active Substance: APREMILAST
     Dosage: 3 MG, BID
     Route: 065
  539. OTEZLA [Suspect]
     Active Substance: APREMILAST
     Dosage: 3.0 MG
     Route: 065
  540. OTEZLA [Suspect]
     Active Substance: APREMILAST
     Dosage: 3.0 MG
     Route: 065
  541. OTEZLA [Suspect]
     Active Substance: APREMILAST
     Dosage: 3.0 MG
     Route: 048
  542. OTEZLA [Suspect]
     Active Substance: APREMILAST
     Dosage: 3 MG, Q12H
     Route: 048
  543. OTEZLA [Suspect]
     Active Substance: APREMILAST
     Dosage: UNK
     Route: 065
  544. PERIOGARD [Suspect]
     Active Substance: CHLORHEXIDINE GLUCONATE
     Indication: Product used for unknown indication
     Dosage: UNK
     Route: 065
  545. RAMIPRIL [Suspect]
     Active Substance: RAMIPRIL
     Indication: Product used for unknown indication
     Dosage: UNK
     Route: 065
  546. RAMIPRIL [Suspect]
     Active Substance: RAMIPRIL
     Dosage: UNK
     Route: 016
  547. RAMIPRIL [Suspect]
     Active Substance: RAMIPRIL
     Dosage: UNK
     Route: 042
  548. CETIRIZINE HYDROCHLORIDE\PSEUDOEPHEDRINE HYDROCHLORIDE [Suspect]
     Active Substance: CETIRIZINE HYDROCHLORIDE\PSEUDOEPHEDRINE HYDROCHLORIDE
     Indication: Rheumatoid arthritis
     Dosage: 25 MG
     Route: 065
  549. CETIRIZINE HYDROCHLORIDE\PSEUDOEPHEDRINE HYDROCHLORIDE [Suspect]
     Active Substance: CETIRIZINE HYDROCHLORIDE\PSEUDOEPHEDRINE HYDROCHLORIDE
     Dosage: UNK
     Route: 016
  550. CETIRIZINE HYDROCHLORIDE\PSEUDOEPHEDRINE HYDROCHLORIDE [Suspect]
     Active Substance: CETIRIZINE HYDROCHLORIDE\PSEUDOEPHEDRINE HYDROCHLORIDE
     Dosage: 10 MG
     Route: 065
  551. CETIRIZINE HYDROCHLORIDE\PSEUDOEPHEDRINE HYDROCHLORIDE [Suspect]
     Active Substance: CETIRIZINE HYDROCHLORIDE\PSEUDOEPHEDRINE HYDROCHLORIDE
     Dosage: UNK
     Route: 065
  552. CETIRIZINE HYDROCHLORIDE\PSEUDOEPHEDRINE HYDROCHLORIDE [Suspect]
     Active Substance: CETIRIZINE HYDROCHLORIDE\PSEUDOEPHEDRINE HYDROCHLORIDE
     Dosage: 10 MG, Q24H
     Route: 065
  553. CETIRIZINE HYDROCHLORIDE\PSEUDOEPHEDRINE HYDROCHLORIDE [Suspect]
     Active Substance: CETIRIZINE HYDROCHLORIDE\PSEUDOEPHEDRINE HYDROCHLORIDE
     Dosage: UNK
     Route: 042
  554. HYALURONIDASE (HUMAN RECOMBINANT) [Suspect]
     Active Substance: HYALURONIDASE (HUMAN RECOMBINANT)
     Indication: Rheumatoid arthritis
     Dosage: UNK
     Route: 058
  555. HYALURONIDASE (HUMAN RECOMBINANT) [Suspect]
     Active Substance: HYALURONIDASE (HUMAN RECOMBINANT)
     Dosage: UNK
     Route: 058
  556. DIETARY SUPPLEMENT\HERBALS [Suspect]
     Active Substance: DIETARY SUPPLEMENT\HERBALS
     Indication: Product used for unknown indication
     Dosage: UNK
     Route: 065
  557. USTEKINUMAB [Suspect]
     Active Substance: USTEKINUMAB
     Indication: Product used for unknown indication
     Dosage: 45 MG
     Route: 042
  558. USTEKINUMAB [Suspect]
     Active Substance: USTEKINUMAB
     Dosage: UNK
     Route: 058
  559. USTEKINUMAB [Suspect]
     Active Substance: USTEKINUMAB
     Dosage: 40 MG
     Route: 058
  560. PREDNISONE [Suspect]
     Active Substance: PREDNISONE
     Indication: Rheumatoid arthritis
     Dosage: UNK
     Route: 065
  561. PREDNISONE [Suspect]
     Active Substance: PREDNISONE
     Dosage: UNK
     Route: 048
  562. FLUMETHASONE PIVALATE [Suspect]
     Active Substance: FLUMETHASONE PIVALATE
     Indication: Product used for unknown indication
     Dosage: UNK
     Route: 065
  563. QUETIAPINE [Suspect]
     Active Substance: QUETIAPINE
     Indication: Product used for unknown indication
     Route: 065
  564. NEOMYCIN [Suspect]
     Active Substance: NEOMYCIN
     Indication: Product used for unknown indication
     Dosage: UNK
     Route: 048
  565. HYDROCORTISONE BUTYRATE [Suspect]
     Active Substance: HYDROCORTISONE BUTYRATE
     Indication: Rheumatoid arthritis
     Dosage: UNK
     Route: 058
  566. HYDROCORTISONE BUTYRATE [Suspect]
     Active Substance: HYDROCORTISONE BUTYRATE
     Dosage: UNK
     Route: 048
  567. RITUXIMAB [Suspect]
     Active Substance: RITUXIMAB
     Indication: Rheumatoid arthritis
     Dosage: UNK (CONCENTRATE AND SOLVENT FOR SOLUTION FOR INJECTION)
     Route: 042
  568. RITUXIMAB [Suspect]
     Active Substance: RITUXIMAB
     Dosage: UNK
     Route: 058
  569. RITUXIMAB [Suspect]
     Active Substance: RITUXIMAB
     Dosage: UNK
     Route: 065
  570. RITUXIMAB [Suspect]
     Active Substance: RITUXIMAB
     Dosage: UNK
     Route: 043
  571. TOFACITINIB CITRATE [Suspect]
     Active Substance: TOFACITINIB CITRATE
     Indication: Rheumatoid arthritis
     Dosage: UNK
     Route: 065
  572. TOFACITINIB CITRATE [Suspect]
     Active Substance: TOFACITINIB CITRATE
     Dosage: 5 MG, BID
     Route: 065
  573. TOFACITINIB CITRATE [Suspect]
     Active Substance: TOFACITINIB CITRATE
     Dosage: 10 MG, Q24H
     Route: 065
  574. TOFACITINIB CITRATE [Suspect]
     Active Substance: TOFACITINIB CITRATE
     Dosage: 5 MG, QW
     Route: 048
  575. TOFACITINIB CITRATE [Suspect]
     Active Substance: TOFACITINIB CITRATE
     Dosage: 5 MG
     Route: 065
  576. TOFACITINIB CITRATE [Suspect]
     Active Substance: TOFACITINIB CITRATE
     Dosage: 5 MG, Q12H
     Route: 065
  577. TOFACITINIB CITRATE [Suspect]
     Active Substance: TOFACITINIB CITRATE
     Dosage: 5 MG, Q24H
     Route: 048
  578. TOFACITINIB CITRATE [Suspect]
     Active Substance: TOFACITINIB CITRATE
     Indication: Rheumatoid arthritis
     Dosage: UNK
     Route: 065
  579. TOFACITINIB CITRATE [Suspect]
     Active Substance: TOFACITINIB CITRATE
     Dosage: UNK
     Route: 058
  580. PHENYLEPHRINE HYDROCHLORIDE [Suspect]
     Active Substance: PHENYLEPHRINE HYDROCHLORIDE
     Indication: Rheumatoid arthritis
     Dosage: UNK
     Route: 065
  581. NAPROXEN [Suspect]
     Active Substance: NAPROXEN
     Indication: Rheumatoid arthritis
     Dosage: 500 MG, BID
     Route: 065
  582. METHYLPREDNISOLONE SODIUM SUCCINATE [Suspect]
     Active Substance: METHYLPREDNISOLONE SODIUM SUCCINATE
     Indication: Product used for unknown indication
     Dosage: UNK
     Route: 065
  583. CALCIUM CITRATE [Suspect]
     Active Substance: CALCIUM CITRATE
     Indication: Product used for unknown indication
     Dosage: UNK
     Route: 065
  584. XELJANZ [Suspect]
     Active Substance: TOFACITINIB CITRATE
     Indication: Rheumatoid arthritis
     Dosage: 5 MG, BID
     Route: 065
  585. XELJANZ [Suspect]
     Active Substance: TOFACITINIB CITRATE
     Dosage: UNK
     Route: 065
  586. XELJANZ [Suspect]
     Active Substance: TOFACITINIB CITRATE
     Dosage: 5 MG
     Route: 065
  587. XELJANZ [Suspect]
     Active Substance: TOFACITINIB CITRATE
     Dosage: 10 MG, Q24H
     Route: 065
  588. XELJANZ [Suspect]
     Active Substance: TOFACITINIB CITRATE
     Dosage: 5 MG, QW
     Route: 048
  589. XELJANZ [Suspect]
     Active Substance: TOFACITINIB CITRATE
     Dosage: 5 MG, Q24H
     Route: 048
  590. XELJANZ [Suspect]
     Active Substance: TOFACITINIB CITRATE
     Dosage: 5 MG, BID
     Route: 048
  591. XELJANZ [Suspect]
     Active Substance: TOFACITINIB CITRATE
     Dosage: 5 MG
     Route: 016
  592. XELJANZ [Suspect]
     Active Substance: TOFACITINIB CITRATE
     Dosage: 1 DOSAGE FORM, Q24H
     Route: 065
  593. XELJANZ [Suspect]
     Active Substance: TOFACITINIB CITRATE
     Dosage: 5 MG, QW
     Route: 065
  594. XELJANZ [Suspect]
     Active Substance: TOFACITINIB CITRATE
     Dosage: 5 MG, Q2W
     Route: 065
  595. CODEINE PHOSPHATE [Concomitant]
     Active Substance: CODEINE PHOSPHATE
     Indication: Product used for unknown indication
     Dosage: UNK
     Route: 065
  596. RISEDRONATE SODIUM [Concomitant]
     Active Substance: RISEDRONATE SODIUM
     Indication: Product used for unknown indication
     Dosage: 1 DOSAGE FORM
     Route: 065
  597. LISINOPRIL [Concomitant]
     Active Substance: LISINOPRIL
     Indication: Product used for unknown indication
     Dosage: UNK
     Route: 065
  598. QUETIAPINE [Concomitant]
     Active Substance: QUETIAPINE
     Indication: Product used for unknown indication
     Dosage: UNK
     Route: 065
  599. CALCIUM GLUCONATE [Concomitant]
     Active Substance: CALCIUM GLUCONATE
     Indication: Product used for unknown indication
     Dosage: UNK
     Route: 065
  600. CAFFEINE CITRATE [Concomitant]
     Active Substance: CAFFEINE CITRATE
     Indication: Product used for unknown indication
     Dosage: UNK
     Route: 065
  601. ATASOL [Concomitant]
     Indication: Rheumatoid arthritis
     Dosage: 25 MG
     Route: 065
  602. IBUPROFEN [Concomitant]
     Active Substance: IBUPROFEN
     Indication: Product used for unknown indication
     Dosage: UNK
     Route: 065
  603. XELJANZ [Concomitant]
     Active Substance: TOFACITINIB CITRATE
     Indication: Rheumatoid arthritis
     Dosage: 5 MG, BID
     Route: 065
  604. XELJANZ [Concomitant]
     Active Substance: TOFACITINIB CITRATE
     Dosage: UNK
     Route: 065
  605. XELJANZ [Concomitant]
     Active Substance: TOFACITINIB CITRATE
     Dosage: 5 MG, BID
     Route: 065
  606. DICLOFENAC [Concomitant]
     Active Substance: DICLOFENAC
     Indication: Product used for unknown indication
     Dosage: 50 MG
     Route: 065
  607. VITAMIN D3 [Concomitant]
     Active Substance: CHOLECALCIFEROL
     Indication: Product used for unknown indication
     Dosage: UNK
     Route: 065
  608. DICLOFENAC POTASSIUM [Concomitant]
     Active Substance: DICLOFENAC POTASSIUM
     Indication: Product used for unknown indication
     Dosage: UNK
     Route: 065
  609. CAFFEINE [Concomitant]
     Active Substance: CAFFEINE
     Indication: Product used for unknown indication
     Dosage: UNK
     Route: 065
  610. ACETAMINOPHEN [Concomitant]
     Active Substance: ACETAMINOPHEN
     Indication: Product used for unknown indication
     Dosage: UNK
     Route: 065
  611. ATASOL [Concomitant]
     Indication: Product used for unknown indication
     Dosage: UNK
     Route: 065
  612. CODEINE PHOSPHATE [Concomitant]
     Active Substance: CODEINE PHOSPHATE
     Indication: Product used for unknown indication
     Dosage: UNK
     Route: 065
  613. ACETAMINOPHEN [Concomitant]
     Active Substance: ACETAMINOPHEN
     Indication: Product used for unknown indication
     Dosage: UNK
     Route: 065
  614. LISINOPRIL [Concomitant]
     Active Substance: LISINOPRIL
     Indication: Product used for unknown indication
     Dosage: UNK
     Route: 065
  615. PANTOPRAZOLE [Concomitant]
     Active Substance: PANTOPRAZOLE
     Indication: Dyspepsia
     Dosage: UNK
     Route: 065
  616. TOFACITINIB [Concomitant]
     Active Substance: TOFACITINIB
     Indication: Product used for unknown indication
     Dosage: UNK
     Route: 065

REACTIONS (30)
  - Diarrhoea [Fatal]
  - Fibromyalgia [Fatal]
  - Vomiting [Fatal]
  - Wheezing [Fatal]
  - Joint range of motion decreased [Fatal]
  - Helicobacter infection [Fatal]
  - General physical health deterioration [Fatal]
  - Duodenal ulcer perforation [Fatal]
  - Wound infection [Fatal]
  - Blister [Fatal]
  - Breast cancer stage III [Fatal]
  - Type 2 diabetes mellitus [Fatal]
  - Depression [Fatal]
  - Anti-cyclic citrullinated peptide antibody positive [Fatal]
  - Abdominal discomfort [Fatal]
  - Alopecia [Fatal]
  - Arthralgia [Fatal]
  - Wound [Fatal]
  - Systemic lupus erythematosus [Fatal]
  - Synovitis [Fatal]
  - Swelling [Fatal]
  - Pericarditis [Fatal]
  - Pemphigus [Fatal]
  - Hand deformity [Fatal]
  - Glossodynia [Fatal]
  - Rash [Fatal]
  - Live birth [Fatal]
  - Maternal exposure during pregnancy [Fatal]
  - Drug intolerance [Fatal]
  - Intentional product use issue [Fatal]
